FAERS Safety Report 9347077 (Version 1)
Quarter: 2020Q3

REPORT INFORMATION
  Report Type: Spontaneous
  Country: FR (occurrence: FR)
  Receive Date: 20130613
  Receipt Date: 20130613
  Transmission Date: 20201105
  Serious: Yes (Hospitalization)
  Sender: FDA-Public Use
  Company Number: FR-GLAXOSMITHKLINE-B0896826A

PATIENT
  Age: 67 Year
  Sex: Male

DRUGS (9)
  1. CEFUROXIME. [Suspect]
     Active Substance: CEFUROXIME
     Indication: ANTIBIOTIC PROPHYLAXIS
     Route: 042
     Dates: start: 20130311, end: 20130311
  2. EPHEDRINE. [Suspect]
     Active Substance: EPHEDRINE
     Indication: INDUCTION OF ANAESTHESIA
     Dosage: 9MG SEE DOSAGE TEXT
     Route: 042
     Dates: start: 20130311, end: 20130311
  3. DIPRIVAN [Suspect]
     Active Substance: PROPOFOL
     Indication: ANAESTHESIA
     Route: 042
     Dates: start: 20130311, end: 20130311
  4. SUPRANE [Suspect]
     Active Substance: DESFLURANE
     Indication: ANAESTHESIA
     Route: 042
     Dates: start: 20130311, end: 20130311
  5. ATRACURIUM [Suspect]
     Active Substance: ATRACURIUM
     Indication: ANAESTHESIA
     Route: 042
     Dates: start: 20130311, end: 20130311
  6. NIMBEX [Suspect]
     Active Substance: CISATRACURIUM BESYLATE
     Indication: ANAESTHESIA
     Route: 042
     Dates: start: 20130311, end: 20130311
  7. RAPIFEN (ALFENTANIL HYDROCHLORIDE) [Suspect]
     Active Substance: ALFENTANIL HYDROCHLORIDE
     Indication: ANAESTHESIA
     Route: 042
     Dates: start: 20130311, end: 20130311
  8. SUFENTANIL [Suspect]
     Active Substance: SUFENTANIL
     Indication: ANAESTHESIA
     Route: 042
     Dates: start: 20130311, end: 20130311
  9. KETAMINE [Suspect]
     Active Substance: KETAMINE
     Indication: ANAESTHESIA
     Route: 042
     Dates: start: 20130311, end: 20130311

REACTIONS (4)
  - Shock [Recovered/Resolved]
  - Blood pressure decreased [Unknown]
  - Haemodynamic instability [Unknown]
  - Hypotension [Unknown]

NARRATIVE: CASE EVENT DATE: 20130311
